FAERS Safety Report 14510688 (Version 2)
Quarter: 2021Q1

REPORT INFORMATION
  Report Type: Spontaneous
  Country: TR (occurrence: TR)
  Receive Date: 20180209
  Receipt Date: 20210304
  Transmission Date: 20210419
  Serious: Yes (Life-Threatening, Hospitalization, Other)
  Sender: FDA-Public Use
  Company Number: TR-BAYER-2018-023869

PATIENT
  Age: 33 Year
  Sex: Female

DRUGS (1)
  1. DROSPIRENONE + ETHINYLESTRADIOL [Suspect]
     Active Substance: DROSPIRENONE\ETHINYL ESTRADIOL
     Indication: ORAL CONTRACEPTION
     Dosage: UNK
     Route: 048

REACTIONS (4)
  - Cardiogenic shock [Recovered/Resolved]
  - Coronary artery occlusion [Recovered/Resolved]
  - Acute myocardial infarction [Recovered/Resolved]
  - Left ventricular dysfunction [Recovered/Resolved]
